FAERS Safety Report 16118691 (Version 3)
Quarter: 2019Q3

REPORT INFORMATION
  Report Type: Report from Study
  Country: JP (occurrence: JP)
  Receive Date: 20190326
  Receipt Date: 20190715
  Transmission Date: 20191004
  Serious: Yes (Other)
  Sender: FDA-Public Use
  Company Number: JP-PFIZER INC-2019126754

PATIENT

DRUGS (3)
  1. REMICADE [Suspect]
     Active Substance: INFLIXIMAB
     Dosage: BASED ON THE PATIENT^S CLINICAL RESPONSE (THE ADJUSTED GROUP)
  2. METHOTREXATE SODIUM. [Suspect]
     Active Substance: METHOTREXATE SODIUM
     Indication: RHEUMATOID ARTHRITIS
     Dosage: UNK, WEEKLY (UPTO 16 MG)
  3. REMICADE [Suspect]
     Active Substance: INFLIXIMAB
     Indication: RHEUMATOID ARTHRITIS
     Dosage: 3 MG/KG, UNK (AT WEEKS 0, 2, AND 6 WEEKS AND INFLIXIMAB AT DOSES 3, 6, OR 10 MG/KG WAS ADMINISTERED)

REACTIONS (1)
  - Breast cancer [Unknown]
